FAERS Safety Report 9119243 (Version 1)
Quarter: 2013Q1

REPORT INFORMATION
  Report Type: Spontaneous
  Country: US (occurrence: US)
  Receive Date: 20130207
  Receipt Date: 20130207
  Transmission Date: 20140127
  Serious: Yes (Death, Other)
  Sender: FDA-Public Use
  Company Number: CHPA2013US002573

PATIENT
  Age: 60 Year
  Sex: Female

DRUGS (13)
  1. ACETAMINOPHEN (PARACETAMOL) [Suspect]
     Dosage: UNK, UNK
     Route: 048
  2. TIZANIDINE [Suspect]
     Dosage: UNK, UNK
     Route: 048
  3. AMLODIPINE [Suspect]
     Dosage: UNK, UNK
     Route: 048
  4. ARIPIPRAZOLE [Suspect]
     Dosage: UNK, UNK
     Route: 048
  5. HYDROCODONE [Suspect]
     Dosage: UNK, UNK
     Route: 048
  6. OXYCODONE [Suspect]
     Dosage: UNK, UNK
     Route: 048
  7. FLUOXETINE [Suspect]
     Dosage: UNK, UNK
     Route: 048
  8. AMITRIPTYLINE [Suspect]
     Dosage: UNK, UNK
     Route: 048
  9. ZOLPIDEM [Suspect]
     Dosage: UNK, UNK
     Route: 048
  10. HYOSCYAMINE [Suspect]
     Dosage: UNK, UNK
     Route: 048
  11. HYDROCHLOROTHIAZIDE [Suspect]
     Dosage: UNK, UNK
     Route: 048
  12. SIMVASTATIN [Suspect]
     Dosage: UNK, UNK
     Route: 048
  13. SUMATRIPTAN [Suspect]
     Dosage: UNK, UNK
     Route: 048

REACTIONS (2)
  - Completed suicide [Fatal]
  - Cardio-respiratory arrest [Unknown]
